FAERS Safety Report 8935714 (Version 2)
Quarter: 2013Q4

REPORT INFORMATION
  Report Type: Spontaneous
  Country: GB (occurrence: GB)
  Receive Date: 20121130
  Receipt Date: 20131007
  Transmission Date: 20140711
  Serious: Yes (Hospitalization)
  Sender: FDA-Public Use
  Company Number: GB-BANPHARM-20120378

PATIENT
  Age: 69 Year
  Sex: 0

DRUGS (3)
  1. IBUPROFEN UNKNOWN PRODUCT [Suspect]
     Indication: ARTHRITIS
     Dosage: 400 MG, QD,
     Route: 048
     Dates: end: 20041231
  2. LISINOPRIL [Suspect]
     Indication: HYPERTENSION
     Dosage: 5 MG, QD,
     Route: 048
     Dates: end: 20041231
  3. BENDROFLUAZIDE [Concomitant]
     Indication: HYPERTENSION
     Dosage: 2.5 MG,QD,
     Route: 048
     Dates: end: 20041231

REACTIONS (2)
  - Renal failure acute [Recovering/Resolving]
  - Gastrooesophageal reflux disease [Recovering/Resolving]
